FAERS Safety Report 21374308 (Version 1)
Quarter: 2022Q3

REPORT INFORMATION
  Report Type: Spontaneous
  Country: JP (occurrence: JP)
  Receive Date: 20220926
  Receipt Date: 20220926
  Transmission Date: 20221027
  Serious: Yes (Other)
  Sender: FDA-Public Use
  Company Number: JP-ARGENX-2022-ARGX-JP001885

PATIENT

DRUGS (1)
  1. VYVGART [Suspect]
     Active Substance: EFGARTIGIMOD ALFA-FCAB
     Indication: Myasthenia gravis
     Dosage: UNK
     Route: 041
     Dates: start: 20220802, end: 20220823

REACTIONS (2)
  - Myasthenia gravis crisis [Unknown]
  - Asthenia [Unknown]

NARRATIVE: CASE EVENT DATE: 20220907
